FAERS Safety Report 18538330 (Version 1)
Quarter: 2020Q4

REPORT INFORMATION
  Report Type: Spontaneous
  Country: CN (occurrence: CN)
  Receive Date: 20201124
  Receipt Date: 20201124
  Transmission Date: 20210114
  Serious: Yes (Disabling, Other)
  Sender: FDA-Public Use
  Company Number: CN-009507513-2011CHN012865

PATIENT
  Age: 45 Year
  Sex: Male
  Weight: 57 kg

DRUGS (8)
  1. KEYTRUDA [Suspect]
     Active Substance: PEMBROLIZUMAB
     Indication: LIP AND/OR ORAL CAVITY CANCER
     Dosage: 200MG, ONCE
     Route: 041
     Dates: start: 20200916, end: 20200916
  2. SODIUM CHLORIDE. [Concomitant]
     Active Substance: SODIUM CHLORIDE
     Dosage: 100 MILLILITER, ONCE
     Route: 041
     Dates: start: 20200927, end: 20200927
  3. SODIUM CHLORIDE. [Concomitant]
     Active Substance: SODIUM CHLORIDE
     Dosage: 100 MILLILITER, ONCE
     Route: 041
     Dates: start: 20201004, end: 20201004
  4. SODIUM CHLORIDE. [Concomitant]
     Active Substance: SODIUM CHLORIDE
     Dosage: 500 MILLILITER, ONCE
     Route: 041
     Dates: start: 20200927, end: 20200927
  5. NEDAPLATIN [Suspect]
     Active Substance: NEDAPLATIN
     Indication: LIP AND/OR ORAL CAVITY CANCER
     Dosage: 138MG, ONCE
     Route: 041
     Dates: start: 20200927, end: 20200927
  6. GEMZAR [Suspect]
     Active Substance: GEMCITABINE HYDROCHLORIDE
     Indication: LIP AND/OR ORAL CAVITY CANCER
     Dosage: 1.7G, ONCE
     Route: 041
     Dates: start: 20200927, end: 20200927
  7. GEMZAR [Suspect]
     Active Substance: GEMCITABINE HYDROCHLORIDE
     Dosage: 1.7G, ONCE
     Route: 041
     Dates: start: 20201004, end: 20201004
  8. SODIUM CHLORIDE. [Concomitant]
     Active Substance: SODIUM CHLORIDE
     Dosage: 100 MILLILITER, ONCE
     Route: 041
     Dates: start: 20200916, end: 20200916

REACTIONS (4)
  - Neutrophil count decreased [Recovering/Resolving]
  - White blood cell count decreased [Recovering/Resolving]
  - Myelosuppression [Unknown]
  - Platelet count decreased [Recovering/Resolving]

NARRATIVE: CASE EVENT DATE: 20201012
